FAERS Safety Report 5151425-0 (Version None)
Quarter: 2006Q4

REPORT INFORMATION
  Report Type: 
  Country: None (occurrence: None)
  Receive Date: 20061115
  Receipt Date: 20061109
  Transmission Date: 20070319
  Serious: Yes (Hospitalization)
  Sender: FDA-Public Use
  Company Number: AU-BRISTOL-MYERS SQUIBB COMPANY-13571856

PATIENT
  Age: 37 Year
  Sex: Male

DRUGS (9)
  1. ATAZANAVIR [Suspect]
     Dates: start: 20050115, end: 20050718
  2. RITONAVIR [Suspect]
     Route: 048
     Dates: start: 20050115, end: 20050718
  3. LAMIVUDINE [Suspect]
     Route: 048
     Dates: start: 20050115, end: 20050718
  4. TENOFOVIR DISOPROXIL FUMARATE [Suspect]
     Route: 048
     Dates: start: 20050115, end: 20050718
  5. DOXYCYCLINE HCL [Concomitant]
  6. METOCLOPRAMIDE HCL [Concomitant]
  7. ACETAMINOPHEN W/ CODEINE [Concomitant]
  8. NITRAZEPAM [Concomitant]
  9. PIZOTIFEN [Concomitant]

REACTIONS (4)
  - BLOOD BILIRUBIN INCREASED [None]
  - JAUNDICE [None]
  - MALAISE [None]
  - RESPIRATORY DISORDER [None]
